FAERS Safety Report 10256622 (Version 1)
Quarter: 2014Q2

REPORT INFORMATION
  Report Type: Spontaneous
  Country: ZA (occurrence: ZA)
  Receive Date: 20140624
  Receipt Date: 20140624
  Transmission Date: 20141212
  Serious: Yes (Hospitalization)
  Sender: FDA-Public Use
  Company Number: ZA-ABBVIE-14K-143-1248033-00

PATIENT
  Sex: 0

DRUGS (2)
  1. SYNAGIS [Suspect]
     Indication: PRODUCT USED FOR UNKNOWN INDICATION
     Dates: start: 20140307, end: 20140307
  2. SYNAGIS [Suspect]
     Dates: start: 20140602, end: 20140602

REACTIONS (3)
  - Bronchiolitis [Recovering/Resolving]
  - Bronchiolitis [Unknown]
  - Malaise [Unknown]
